FAERS Safety Report 10748563 (Version 1)
Quarter: 2015Q1

REPORT INFORMATION
  Report Type: Spontaneous
  Country: US (occurrence: None)
  Receive Date: 20150128
  Receipt Date: 20150128
  Transmission Date: 20150721
  Serious: Yes (Hospitalization)
  Sender: FDA-Public Use
  Company Number: None

PATIENT
  Age: 49 Year
  Sex: Male
  Weight: 97.52 kg

DRUGS (1)
  1. CELEBREX [Suspect]
     Active Substance: CELECOXIB
     Indication: ARTHRITIS
     Route: 048
     Dates: start: 20150125, end: 20150126

REACTIONS (5)
  - Pain in extremity [None]
  - Heart rate increased [None]
  - Blood pressure increased [None]
  - Flushing [None]
  - Dizziness [None]

NARRATIVE: CASE EVENT DATE: 20150126
